FAERS Safety Report 15837390 (Version 1)
Quarter: 2019Q1

REPORT INFORMATION
  Report Type: Report from Study
  Country: BR (occurrence: BR)
  Receive Date: 20190117
  Receipt Date: 20190117
  Transmission Date: 20190417
  Serious: Yes (Other)
  Sender: FDA-Public Use
  Company Number: PHHY2018BR192236

PATIENT
  Sex: Female
  Weight: 72 kg

DRUGS (1)
  1. COSENTYX [Suspect]
     Active Substance: SECUKINUMAB
     Indication: PSORIATIC ARTHROPATHY
     Dosage: 300 MG, QMO
     Route: 058
     Dates: start: 20180823

REACTIONS (5)
  - Weight decreased [Not Recovered/Not Resolved]
  - Gait inability [Unknown]
  - Scar [Not Recovered/Not Resolved]
  - Malaise [Recovering/Resolving]
  - Parkinson^s disease [Recovering/Resolving]
